FAERS Safety Report 8566088-1 (Version None)
Quarter: 2012Q3

REPORT INFORMATION
  Report Type: 
  Country: None (occurrence: None)
  Receive Date: 20120803
  Receipt Date: 20110821
  Transmission Date: 20120928
  Serious: No
  Sender: FDA-Public Use
  Company Number: US-ABBOTT-11P-163-0848327-00

PATIENT
  Sex: Male
  Weight: 77.18 kg

DRUGS (5)
  1. ASPIRIN [Suspect]
     Indication: MYOCARDIAL INFARCTION
     Dates: start: 20000101
  2. CARVEDILOL [Concomitant]
     Indication: MYOCARDIAL INFARCTION
  3. NIASPAN [Suspect]
     Indication: MYOCARDIAL INFARCTION
     Dates: start: 20110815, end: 20110820
  4. PLAVIX [Concomitant]
     Indication: MYOCARDIAL INFARCTION
  5. SIMVASTATIN [Suspect]
     Indication: MYOCARDIAL INFARCTION

REACTIONS (2)
  - CHEST DISCOMFORT [None]
  - RASH [None]
